FAERS Safety Report 6920055-X (Version None)
Quarter: 2010Q3

REPORT INFORMATION
  Report Type: 
  Country: None (occurrence: None)
  Receive Date: 20100730
  Receipt Date: 20091002
  Transmission Date: 20110219
  Serious: Yes (Other)
  Sender: FDA-Public Use
  Company Number: OMPQ-PR-0910S-0849

PATIENT
  Age: 47 Year
  Sex: Female

DRUGS (2)
  1. OMNIPAQUE 140 [Suspect]
     Indication: PRODUCT USED FOR UNKNOWN INDICATION
     Dosage: 120 ML, SINGLE DOSE, I.V.
     Route: 042
     Dates: start: 20090916, end: 20090916
  2. OMNIPAQUE 140 [Suspect]

REACTIONS (3)
  - ANAPHYLACTOID REACTION [None]
  - DYSPNOEA [None]
  - URTICARIA [None]
